FAERS Safety Report 25926764 (Version 1)
Quarter: 2025Q4

REPORT INFORMATION
  Report Type: Spontaneous
  Country: US (occurrence: None)
  Receive Date: 20251015
  Receipt Date: 20251015
  Transmission Date: 20260117
  Serious: Yes (Hospitalization)
  Sender: FDA-CTU
  Company Number: None

PATIENT
  Age: 66 Year
  Sex: Female
  Weight: 50.8 kg

DRUGS (1)
  1. KEYTRUDA [Suspect]
     Active Substance: PEMBROLIZUMAB
     Indication: Squamous cell carcinoma of the oral cavity
     Dosage: OTHER FREQUENCY : Q3W;?
     Route: 042
     Dates: start: 20250926

REACTIONS (2)
  - Skin infection [None]
  - Abscess neck [None]

NARRATIVE: CASE EVENT DATE: 20251014
